FAERS Safety Report 19153349 (Version 1)
Quarter: 2021Q2

REPORT INFORMATION
  Report Type: Spontaneous
  Country: US (occurrence: US)
  Receive Date: 20210419
  Receipt Date: 20210419
  Transmission Date: 20210717
  Serious: Yes (Other)
  Sender: FDA-Public Use
  Company Number: US-MYLANLABS-2021M1023322

PATIENT
  Age: 51 Year
  Sex: Female

DRUGS (8)
  1. TRASTUZUMAB. [Suspect]
     Active Substance: TRASTUZUMAB
     Indication: INVASIVE DUCTAL BREAST CARCINOMA
     Dosage: 8 MILLIGRAM/KILOGRAM, CYCLE ONE CYCLE; LOADING DOSE
     Route: 065
  2. DOCETAXEL. [Suspect]
     Active Substance: DOCETAXEL
     Indication: INVASIVE DUCTAL BREAST CARCINOMA
     Dosage: 75 MILLIGRAM/SQ. METER, CYCLE PART OF TCHP REGIMEN; EVERY 21 DAYS
     Route: 065
  3. CARBOPLATIN. [Suspect]
     Active Substance: CARBOPLATIN
     Indication: INVASIVE DUCTAL BREAST CARCINOMA
     Dosage: PART OF TCHP REGIMEN; EVERY 21 DAYS. AREA UNDER THE PLASMA CONCENTRATION?TIME CURVE (AUC) 6
     Route: 065
  4. PERTUZUMAB. [Suspect]
     Active Substance: PERTUZUMAB
     Indication: INVASIVE DUCTAL BREAST CARCINOMA
     Dosage: 840 MILLIGRAM, CYCLE LOADING DOSE
     Route: 065
  5. CARBOPLATIN. [Suspect]
     Active Substance: CARBOPLATIN
     Indication: HER2 POSITIVE BREAST CANCER
  6. TRASTUZUMAB. [Suspect]
     Active Substance: TRASTUZUMAB
     Indication: HER2 POSITIVE BREAST CANCER
     Dosage: 6 MILLIGRAM/KILOGRAM, CYCLE PART OF TCHP REGIMEN; EVERY 21 DAYS
     Route: 065
  7. PERTUZUMAB. [Suspect]
     Active Substance: PERTUZUMAB
     Indication: HER2 POSITIVE BREAST CANCER
     Dosage: 420 MILLIGRAM, CYCLE PART OF TCHP REGIMEN; EVERY 21 DAYS
     Route: 065
  8. DOCETAXEL. [Suspect]
     Active Substance: DOCETAXEL
     Indication: HER2 POSITIVE BREAST CANCER

REACTIONS (4)
  - Diarrhoea [Unknown]
  - Fatigue [Unknown]
  - Neuropathy peripheral [Unknown]
  - Ejection fraction decreased [Recovering/Resolving]
